FAERS Safety Report 4710394-5 (Version None)
Quarter: 2005Q3

REPORT INFORMATION
  Report Type: 
  Country: None (occurrence: None)
  Receive Date: 20050711
  Receipt Date: 20050706
  Transmission Date: 20060218
  Serious: Yes (Death)
  Sender: FDA-Public Use
  Company Number: US-BOEHRINGER INGELHEIM PHARMACEUTICALS, INC.-2005-BP-11247BP

PATIENT
  Sex: Male
  Weight: 97.52 kg

DRUGS (3)
  1. TIPRANAVIR / RITONAVIR CAPSULES [Suspect]
     Indication: HIV INFECTION
     Dosage: TPV 500MG/ RTV 200MG
     Route: 048
  2. CIPROFLOXACIN [Concomitant]
     Route: 048
  3. METRONIDAZOLE [Concomitant]
     Route: 048

REACTIONS (1)
  - DEATH [None]
